FAERS Safety Report 8778035 (Version 1)
Quarter: 2012Q4

REPORT INFORMATION
  Report Type: 
  Country: US (occurrence: US)
  Receive Date: 20120911
  Receipt Date: 20120911
  Transmission Date: 20130627
  Serious: No
  Sender: FDA-Public Use
  Company Number: US-PFIZER INC-2012219958

PATIENT
  Age: 46 Year
  Sex: Male

DRUGS (6)
  1. VIAGRA [Suspect]
     Indication: ERECTILE DYSFUNCTION
     Dosage: 100 mg, as needed
  2. ALLOPURINOL [Concomitant]
     Indication: GOUT
     Dosage: 300 mg, daily
  3. INDOMETHACIN [Concomitant]
     Indication: GOUT
     Dosage: 50 mg, 3x/day
  4. COLCHICINE [Concomitant]
     Indication: GOUT
     Dosage: 0.6 mg, 3x/day
  5. GABAPENTIN [Concomitant]
     Dosage: 300 mg, 4x/day
  6. ENALAPRIL [Concomitant]
     Indication: HYPERTENSION
     Dosage: 20 mg, daily

REACTIONS (1)
  - Drug ineffective [Unknown]
